FAERS Safety Report 6074155-X (Version None)
Quarter: 2009Q1

REPORT INFORMATION
  Report Type: 
  Country: None (occurrence: None)
  Receive Date: 20090211
  Receipt Date: 20090129
  Transmission Date: 20090719
  Serious: Yes (Other)
  Sender: FDA-Public Use
  Company Number: FI-ROCHE-611840

PATIENT
  Sex: Female

DRUGS (2)
  1. XELODA [Suspect]
     Dosage: FREQUENCY REPORTED AS 6 CYCLES
     Route: 048
     Dates: start: 20080801, end: 20090101
  2. DOCETAXEL [Suspect]
     Dosage: ROUTE: INF; FREQUENCY REPORTED AS 6 CYCLES WITH CAPECITABINE
     Route: 050
     Dates: start: 20080801, end: 20090101

REACTIONS (3)
  - ABDOMINAL PAIN UPPER [None]
  - GASTROINTESTINAL DISORDER [None]
  - METASTASES TO ABDOMINAL CAVITY [None]
